FAERS Safety Report 21010225 (Version 1)
Quarter: 2022Q2

REPORT INFORMATION
  Report Type: Spontaneous
  Country: US (occurrence: US)
  Receive Date: 20220627
  Receipt Date: 20220627
  Transmission Date: 20220721
  Serious: No
  Sender: FDA-Public Use
  Company Number: US-PFIZER INC-202200893191

PATIENT
  Age: 54 Year
  Sex: Female
  Weight: 64.86 kg

DRUGS (1)
  1. PAXLOVID [Suspect]
     Active Substance: NIRMATRELVIR\RITONAVIR
     Indication: COVID-19 treatment
     Dosage: 3 DF, 2X/DAY (3 TABLETS BY MOUTH, 2 TIMES A DAY FOR 5 DAYS, SAYS PAXLOVID 20X150MG, 10X100MG)
     Route: 048
     Dates: start: 20220607, end: 20220611

REACTIONS (2)
  - COVID-19 [Unknown]
  - Disease recurrence [Unknown]

NARRATIVE: CASE EVENT DATE: 20220620
